FAERS Safety Report 4451155-4 (Version None)
Quarter: 2004Q3

REPORT INFORMATION
  Report Type: 
  Country: None (occurrence: None)
  Receive Date: 20040916
  Receipt Date: 20040908
  Transmission Date: 20050211
  Serious: Yes (Death)
  Sender: FDA-Public Use
  Company Number: 200418976GDDC

PATIENT
  Age: 55 Year
  Sex: Female

DRUGS (4)
  1. ENOXAPARIN SODIUM [Suspect]
     Route: 040
     Dates: start: 20040808, end: 20040809
  2. AMIODARONE HCL [Concomitant]
     Indication: SINUS ARRHYTHMIA
     Route: 048
     Dates: start: 20040808, end: 20040808
  3. ASPIRIN [Concomitant]
     Indication: CORONARY ARTERY DISEASE
     Route: 042
     Dates: start: 20040808, end: 20040808
  4. RANITIDINE [Concomitant]
     Route: 042
     Dates: start: 20040808, end: 20040808

REACTIONS (3)
  - CARDIOGENIC SHOCK [None]
  - CORONARY ARTERY OCCLUSION [None]
  - MYOCARDIAL INFARCTION [None]
